FAERS Safety Report 12584148 (Version 1)
Quarter: 2016Q3

REPORT INFORMATION
  Report Type: Spontaneous
  Country: IT (occurrence: IT)
  Receive Date: 20160722
  Receipt Date: 20160722
  Transmission Date: 20161109
  Serious: Yes (Hospitalization)
  Sender: FDA-Public Use
  Company Number: IT-ASTRAZENECA-2016SE77993

PATIENT
  Age: 3734 Week
  Sex: Female

DRUGS (5)
  1. TORVAST [Concomitant]
     Active Substance: ATORVASTATIN
  2. AUGMENTIN [Suspect]
     Active Substance: AMOXICILLIN\CLAVULANATE POTASSIUM
     Route: 042
     Dates: start: 20160627, end: 20160630
  3. PANTORC [Concomitant]
     Active Substance: PANTOPRAZOLE SODIUM
  4. CARDIOASPIRIN [Suspect]
     Active Substance: ASPIRIN
     Indication: ANTIPLATELET THERAPY
     Route: 065
     Dates: start: 20160606
  5. BRILIQUE [Suspect]
     Active Substance: TICAGRELOR
     Indication: ANTIPLATELET THERAPY
     Route: 048
     Dates: start: 20160606, end: 20160629

REACTIONS (4)
  - Eosinophilia [Recovering/Resolving]
  - Pyrexia [Recovering/Resolving]
  - Renal failure [Recovering/Resolving]
  - C-reactive protein abnormal [Unknown]

NARRATIVE: CASE EVENT DATE: 20160627
